FAERS Safety Report 14153241 (Version 4)
Quarter: 2017Q4

REPORT INFORMATION
  Report Type: Report from Study
  Country: HK (occurrence: HK)
  Receive Date: 20171102
  Receipt Date: 20171228
  Transmission Date: 20180321
  Serious: Yes (Hospitalization, Other)
  Sender: FDA-Public Use
  Company Number: PHHY2017HK151272

PATIENT
  Age: 59 Year
  Sex: Male
  Weight: 56 kg

DRUGS (15)
  1. LINAGLIPTIN [Concomitant]
     Active Substance: LINAGLIPTIN
     Indication: DIABETES MELLITUS
     Dosage: 5 MG, QD FOR 4 WEEKS
     Route: 048
  2. METFORMIN HCL [Concomitant]
     Active Substance: METFORMIN HYDROCHLORIDE
     Indication: PRODUCT USED FOR UNKNOWN INDICATION
     Dosage: 1000 MG, BID FOR 4 WEEK (S)
  3. AMLODIPINE BESYLATE. [Concomitant]
     Active Substance: AMLODIPINE BESYLATE
     Indication: PRODUCT USED FOR UNKNOWN INDICATION
     Dosage: UNK
     Route: 065
  4. REVOLADE [Suspect]
     Active Substance: ELTROMBOPAG
     Indication: IMMUNE THROMBOCYTOPENIC PURPURA
     Dosage: 50 MG, QD
     Route: 048
     Dates: start: 20170606, end: 20171011
  5. MECOBALAMIN [Concomitant]
     Active Substance: METHYLCOBALAMIN
     Indication: PRODUCT USED FOR UNKNOWN INDICATION
     Dosage: 500 UG TDS FOR 4 WEEK (S)
  6. ATENOLOL. [Concomitant]
     Active Substance: ATENOLOL
     Indication: PRODUCT USED FOR UNKNOWN INDICATION
     Dosage: 50 MG, QD FOR 4 WEEK (S)
     Route: 048
  7. REVOLADE [Suspect]
     Active Substance: ELTROMBOPAG
     Dosage: 25 MG, QD
     Route: 048
     Dates: start: 20171127
  8. DEQUADIN [Concomitant]
     Indication: PRODUCT USED FOR UNKNOWN INDICATION
     Dosage: 250 UG, PRN (100 PERCENT) FOR 1 WEEK (S)
     Route: 048
  9. PREDNISOLONE. [Concomitant]
     Active Substance: PREDNISOLONE
     Indication: PRODUCT USED FOR UNKNOWN INDICATION
     Dosage: 10 MG, QD (FOR  4 WEEK (S))
  10. PROTAPHANE HM [Concomitant]
     Indication: PRODUCT USED FOR UNKNOWN INDICATION
     Dosage: 100 U/ML, 3 ML (SC BOLUS 16 UNIT BEFR BREAKFAST AND SC BOLUS 4 UNITS BEFORE DINNER TOTAL FOR 4 WEEKS
  11. ACERTIL [Concomitant]
     Active Substance: PERINDOPRIL ARGININE
     Indication: PRODUCT USED FOR UNKNOWN INDICATION
     Dosage: UNK
     Route: 065
  12. CYCLOSPORIN A [Concomitant]
     Active Substance: CYCLOSPORINE
     Indication: PRODUCT USED FOR UNKNOWN INDICATION
     Dosage: 75 MG, BID FOR 4 WEEK (S)
     Route: 048
  13. ADALAT [Concomitant]
     Active Substance: NIFEDIPINE
     Indication: PRODUCT USED FOR UNKNOWN INDICATION
     Dosage: UNK
     Route: 065
  14. PREDNISOLONE. [Concomitant]
     Active Substance: PREDNISOLONE
     Dosage: 15 MG, QD
     Route: 065
  15. CYCLOSPORIN A [Concomitant]
     Active Substance: CYCLOSPORINE
     Dosage: 50 MG, BID
     Route: 065

REACTIONS (34)
  - Hyperkalaemia [Unknown]
  - Lymphocyte count decreased [Unknown]
  - Vitamin B12 decreased [Unknown]
  - Prothrombin time prolonged [Unknown]
  - Systemic lupus erythematosus [Recovering/Resolving]
  - Neutrophil count increased [Unknown]
  - Blood albumin decreased [Unknown]
  - Rectal haemorrhage [Unknown]
  - Eosinophil count decreased [Unknown]
  - Mean platelet volume increased [Unknown]
  - International normalised ratio increased [Unknown]
  - Tenderness [Unknown]
  - Diverticulitis [Unknown]
  - Dyspnoea [Unknown]
  - Red blood cell count decreased [Unknown]
  - Haemoglobin decreased [Unknown]
  - Haematocrit decreased [Unknown]
  - White blood cell count increased [Unknown]
  - Blood alkaline phosphatase decreased [Unknown]
  - Protein total decreased [Unknown]
  - Blood sodium decreased [Unknown]
  - Blood urea increased [Unknown]
  - Oedema peripheral [Unknown]
  - Lower gastrointestinal haemorrhage [Recovered/Resolved]
  - Abdominal pain lower [Unknown]
  - Colitis [Unknown]
  - Adenocarcinoma [Unknown]
  - Thrombocytopenia [Unknown]
  - Activated partial thromboplastin time prolonged [Unknown]
  - Diarrhoea [Unknown]
  - Deep vein thrombosis [Recovering/Resolving]
  - Blood lactate dehydrogenase increased [Unknown]
  - Oedema [Unknown]
  - Red cell distribution width increased [Unknown]

NARRATIVE: CASE EVENT DATE: 20170907
